FAERS Safety Report 9409309 (Version 3)
Quarter: 2013Q4

REPORT INFORMATION
  Report Type: Spontaneous
  Country: US (occurrence: US)
  Receive Date: 20130719
  Receipt Date: 20131028
  Transmission Date: 20140711
  Serious: Yes (Hospitalization, Other)
  Sender: FDA-Public Use
  Company Number: US-BAYER-2013-085350

PATIENT
  Age: 32 Year
  Sex: Female
  Weight: 97.05 kg

DRUGS (1)
  1. MIRENA [Suspect]
     Dosage: 20 MCG/24HR, CONT
     Route: 015
     Dates: start: 200509, end: 200906

REACTIONS (12)
  - Uterine perforation [None]
  - Premature separation of placenta [None]
  - Abortion spontaneous [None]
  - Haemorrhage in pregnancy [None]
  - Pelvic pain [None]
  - Device issue [None]
  - Injury [None]
  - Pregnancy with contraceptive device [None]
  - Drug ineffective [None]
  - Emotional distress [None]
  - Anxiety [None]
  - Depression [None]
